FAERS Safety Report 4789592-0 (Version None)
Quarter: 2005Q4

REPORT INFORMATION
  Report Type: 
  Country: None (occurrence: None)
  Receive Date: 20051004
  Receipt Date: 20050915
  Transmission Date: 20060501
  Serious: Yes (Other)
  Sender: FDA-Public Use
  Company Number: USA0506101721

PATIENT
  Age: 50 Year
  Sex: Female
  Weight: 72 kg

DRUGS (4)
  1. FORTEO [Suspect]
     Indication: OSTEOPOROSIS
     Dosage: 20 UG DAY
     Dates: start: 20050415
  2. MOBIC [Concomitant]
  3. PROTONIX [Concomitant]
  4. SINGULAIR [Concomitant]

REACTIONS (3)
  - COCCYDYNIA [None]
  - PAIN IN EXTREMITY [None]
  - VITREOUS DETACHMENT [None]
